FAERS Safety Report 15786225 (Version 14)
Quarter: 2021Q3

REPORT INFORMATION
  Report Type: Spontaneous
  Country: IN (occurrence: IN)
  Receive Date: 20190103
  Receipt Date: 20210721
  Transmission Date: 20211014
  Serious: Yes (Hospitalization, Other)
  Sender: FDA-Public Use
  Company Number: IN-PFIZER INC-2017446931

PATIENT
  Age: 54 Year
  Sex: Female
  Weight: 75 kg

DRUGS (10)
  1. PALBACE [Suspect]
     Active Substance: PALBOCICLIB
     Dosage: 100 MG, 1X/DAY
     Dates: start: 20180320
  2. LETROZOLE. [Concomitant]
     Active Substance: LETROZOLE
     Dosage: 2.5 MG, DAILY
  3. PAN [Concomitant]
     Dosage: 40 MG, 1X/DAY
  4. ZOLEDRONIC ACID. [Concomitant]
     Active Substance: ZOLEDRONIC ACID
     Dosage: UNK
  5. AUGMENTIN [Concomitant]
     Active Substance: AMOXICILLIN\CLAVULANATE POTASSIUM
     Dosage: 625 MG, 3X/DAY FOR 5 DAYS
  6. LEVOFLOX [Concomitant]
     Active Substance: LEVOFLOXACIN
     Dosage: 500 MG, 1X/DAY FOR 5 DAYS
  7. DEXA [Concomitant]
     Dosage: UNK, 2X/DAY
  8. PALBACE [Suspect]
     Active Substance: PALBOCICLIB
     Dosage: 100 MG, 1X/DAY
     Route: 048
     Dates: start: 20210616
  9. SHELCAL HD [Concomitant]
     Active Substance: CALCIUM CARBONATE\CHOLECALCIFEROL
     Dosage: UNK, DAILY
  10. PALBACE [Suspect]
     Active Substance: PALBOCICLIB
     Indication: BREAST CANCER METASTATIC
     Dosage: 100 MG, 1X/DAY
     Route: 048
     Dates: start: 20171006

REACTIONS (16)
  - Weight increased [Unknown]
  - Peripheral swelling [Unknown]
  - Diarrhoea [Recovered/Resolved]
  - Pain [Unknown]
  - Skin hypertrophy [Unknown]
  - Neoplasm progression [Unknown]
  - Diabetes mellitus [Unknown]
  - Cataract [Unknown]
  - Dyspepsia [Recovered/Resolved]
  - Feeling cold [Unknown]
  - Febrile neutropenia [Recovered/Resolved]
  - Pyrexia [Recovered/Resolved]
  - Osteosclerosis [Unknown]
  - Pneumonia [Unknown]
  - Lower respiratory tract infection [Recovered/Resolved]
  - Skin swelling [Recovering/Resolving]

NARRATIVE: CASE EVENT DATE: 201710
